FAERS Safety Report 11362117 (Version 1)
Quarter: 2015Q3

REPORT INFORMATION
  Report Type: Spontaneous
  Country: US (occurrence: US)
  Receive Date: 20150810
  Receipt Date: 20150810
  Transmission Date: 20151125
  Serious: Yes (Other)
  Sender: FDA-Public Use
  Company Number: US-PFIZER INC-2015253231

PATIENT
  Age: 59 Year
  Sex: Female

DRUGS (13)
  1. THIOTHIXENE HCL [Suspect]
     Active Substance: THIOTHIXENE HYDROCHLORIDE
     Dosage: 10 UNK, UNK
  2. HALOPERIDOL. [Suspect]
     Active Substance: HALOPERIDOL
     Dosage: UNK
  3. HALOPERIDOL. [Suspect]
     Active Substance: HALOPERIDOL
     Dosage: 10 MG, DAILY
  4. HALOPERIDOL. [Suspect]
     Active Substance: HALOPERIDOL
     Dosage: UNK
  5. CHLORTHALIDONE. [Concomitant]
     Active Substance: CHLORTHALIDONE
     Indication: SCHIZOPHRENIA
     Dosage: 50 MG, DAILY
  6. POTASSIUM [Concomitant]
     Active Substance: POTASSIUM
     Indication: SCHIZOPHRENIA
     Dosage: 50 MEQ, DAILY
  7. THIOTHIXENE HCL [Suspect]
     Active Substance: THIOTHIXENE HYDROCHLORIDE
     Indication: SCHIZOPHRENIA
     Dosage: 10 MG, DAILY
  8. CHLORAL HYDRATE [Concomitant]
     Active Substance: CHLORAL HYDRATE
     Indication: SEDATION
     Dosage: 1000 MG, DAILY
  9. CHLORPROMAZINE. [Suspect]
     Active Substance: CHLORPROMAZINE
     Dosage: 150 MG, UNK
  10. CHLORPROPAMID [Concomitant]
     Indication: SCHIZOPHRENIA
     Dosage: 500 MG, DAILY
  11. HALOPERIDOL. [Suspect]
     Active Substance: HALOPERIDOL
     Dosage: 10 MG, DAILY
  12. HALOPERIDOL. [Suspect]
     Active Substance: HALOPERIDOL
     Indication: SCHIZOPHRENIA
     Dosage: 20 MG, DAILY
  13. PRAZOSIN HYDROCHLORIDE. [Concomitant]
     Active Substance: PRAZOSIN HYDROCHLORIDE
     Indication: SCHIZOPHRENIA
     Dosage: 15 MG, DAILY

REACTIONS (1)
  - Thrombocytopenia [Recovering/Resolving]
